FAERS Safety Report 7599547-9 (Version None)
Quarter: 2011Q3

REPORT INFORMATION
  Report Type: 
  Country: None (occurrence: None)
  Receive Date: 20110711
  Receipt Date: 20110630
  Transmission Date: 20111222
  Serious: Yes (Other)
  Sender: FDA-Public Use
  Company Number: US-BRISTOL-MYERS SQUIBB COMPANY-15877889

PATIENT
  Age: 49 Year
  Sex: Female

DRUGS (4)
  1. DULOXETINE HYDROCHLORIDE [Suspect]
     Indication: DEPRESSION
     Dosage: STARTED 7 MONTHS AGO,60MG BID
  2. ARIPIPRAZOLE [Suspect]
     Indication: PROPHYLAXIS
     Dosage: DOSE REDUCED TO 1MG/DAY
  3. CLONAZEPAM [Concomitant]
  4. AMOXICILLIN AND CLAVULANATE POTASSIUM [Concomitant]

REACTIONS (4)
  - HALLUCINATION, AUDITORY [None]
  - SUICIDAL IDEATION [None]
  - PARANOIA [None]
  - PSYCHOTIC DISORDER [None]
